FAERS Safety Report 7432890-2 (Version None)
Quarter: 2011Q2

REPORT INFORMATION
  Report Type: 
  Country: None (occurrence: None)
  Receive Date: 20110422
  Receipt Date: 20110414
  Transmission Date: 20111010
  Serious: Yes (Other)
  Sender: FDA-Public Use
  Company Number: US-AMGEN-USASP2011013955

PATIENT
  Age: 70 Year
  Sex: Male

DRUGS (31)
  1. EPOGEN [Suspect]
     Dosage: 20000 IU, 3 TIMES/WK
     Route: 042
     Dates: start: 20110324
  2. EPOGEN [Suspect]
  3. ZOLOFT [Concomitant]
     Dosage: UNK
  4. MECLIZINE                          /00072801/ [Concomitant]
     Dosage: UNK
  5. PROTAMINE SULFATE [Concomitant]
  6. EPOGEN [Suspect]
     Indication: RENAL FAILURE CHRONIC
     Dosage: 27500 IU, 3 TIMES/WK
     Route: 042
     Dates: start: 20100921, end: 20110115
  7. VANCOMYCIN [Concomitant]
     Dosage: UNK
  8. AMICAR [Concomitant]
     Dosage: 2 MG, UNK
  9. MORTIN [Concomitant]
     Dosage: 3 MG, UNK
  10. TOPROL-XL [Concomitant]
     Dosage: UNK
  11. PRAVACHOL [Concomitant]
  12. JANUVIA [Concomitant]
     Dosage: UNK
  13. PRINIVIL                           /00894001/ [Concomitant]
     Dosage: UNK
  14. VANCOMYCIN [Concomitant]
  15. OMEPRAZOLE [Concomitant]
  16. JANUVIA [Concomitant]
  17. COLACE [Concomitant]
  18. GABAPENTIN [Concomitant]
     Dosage: 1 MG, UNK
  19. PROTAMINE SULFATE [Concomitant]
     Dosage: UNK
  20. PULMICORT FLEXHALER [Concomitant]
     Dosage: UNK
  21. ALBUTEROL [Concomitant]
     Dosage: UNK
  22. ASPIRIN [Concomitant]
     Dosage: 1 MG, UNK
  23. OMEPRAZOLE [Concomitant]
     Dosage: UNK
  24. HUMALOG [Concomitant]
     Dosage: UNK
  25. EPOGEN [Suspect]
     Dosage: 20000 IU, 2 TIMES/WK
     Route: 058
     Dates: start: 20110115, end: 20110324
  26. TOPROL-XL [Concomitant]
  27. DUONEB [Concomitant]
     Dosage: UNK
  28. NEPRO [Concomitant]
  29. PROCRIT [Suspect]
     Indication: RENAL FAILURE CHRONIC
  30. SINGULAIR [Concomitant]
     Dosage: UNK
  31. PRAVACHOL [Concomitant]
     Dosage: UNK

REACTIONS (6)
  - VENA CAVA FILTER INSERTION [None]
  - MYELODYSPLASTIC SYNDROME [None]
  - REFRACTORY ANAEMIA [None]
  - CARDIAC FAILURE CONGESTIVE [None]
  - CENTRAL VENOUS CATHETERISATION [None]
  - MULTIPLE MYELOMA [None]
